FAERS Safety Report 16697817 (Version 1)
Quarter: 2019Q3

REPORT INFORMATION
  Report Type: Spontaneous
  Country: DE (occurrence: DE)
  Receive Date: 20190813
  Receipt Date: 20190813
  Transmission Date: 20191004
  Serious: Yes (Hospitalization)
  Sender: FDA-Public Use
  Company Number: DE-PFIZER INC-2019344233

PATIENT
  Age: 82 Year
  Sex: Female
  Weight: 52 kg

DRUGS (8)
  1. SIMVASTATIN. [Concomitant]
     Active Substance: SIMVASTATIN
     Dosage: 20 MG, 1X/DAY (20 MG, 0-0-1)
     Route: 048
  2. RAMIPRIL. [Concomitant]
     Active Substance: RAMIPRIL
     Dosage: 5 MG, 1X/DAY (5 MG, 1-0-0)
     Route: 048
  3. RIVAROXABAN [Suspect]
     Active Substance: RIVAROXABAN
     Dosage: 20 MG, 1X/DAY (20 MG, 1-0-0)
     Route: 048
  4. BISOPROLOL [Concomitant]
     Active Substance: BISOPROLOL
     Dosage: 2.5 MG, 1X/DAY (2.5 MG, 1-0-0)
     Route: 048
  5. ACETYLSALICYLSAEURE [Concomitant]
     Active Substance: ASPIRIN
     Dosage: 100 MG, 1X/DAY (100 MG, 1-0-0)
     Route: 048
  6. FUROSEMIDE. [Concomitant]
     Active Substance: FUROSEMIDE
     Dosage: 40 MG, 1X/DAY (40 MG, 1-0-0)
     Route: 048
  7. IBUPROFEN. [Suspect]
     Active Substance: IBUPROFEN
     Dosage: 400 MG, 2X/DAY (400 MG, 1-0-1)
     Route: 048
  8. CALCIUM CARBONATE/COLECALCIFEROL [Concomitant]
     Dosage: 500
     Route: 048

REACTIONS (4)
  - Fatigue [Unknown]
  - Asthenia [Unknown]
  - Haemoglobin decreased [Unknown]
  - Fall [Unknown]
